FAERS Safety Report 24567474 (Version 2)
Quarter: 2024Q4

REPORT INFORMATION
  Report Type: Spontaneous
  Country: US (occurrence: US)
  Receive Date: 20241030
  Receipt Date: 20241119
  Transmission Date: 20250115
  Serious: Yes (Other)
  Sender: ABBVIE
  Company Number: US-ABBVIE-5980963

PATIENT
  Age: 35 Year
  Sex: Female
  Weight: 53 kg

DRUGS (4)
  1. LILETTA [Suspect]
     Active Substance: LEVONORGESTREL
     Indication: Product used for unknown indication
     Route: 015
     Dates: start: 20240925
  2. DROSPIRENONE\ETHINYL ESTRADIOL [Concomitant]
     Active Substance: DROSPIRENONE\ETHINYL ESTRADIOL
     Indication: Product used for unknown indication
     Dosage: 3-0.02 MG TABLET?TAKE 1 TABLET BY MOUTH IN THE MORNING. SKIP PLACEBO WEEK
     Route: 048
     Dates: start: 20240925
  3. BETADINE [Concomitant]
     Active Substance: POVIDONE-IODINE
     Indication: Product used for unknown indication
  4. SPIRONOLACTONE [Concomitant]
     Active Substance: SPIRONOLACTONE
     Indication: Acne
     Route: 048

REACTIONS (1)
  - Cervix haemorrhage uterine [Recovered/Resolved]

NARRATIVE: CASE EVENT DATE: 20240925
